FAERS Safety Report 7160700-X (Version None)
Quarter: 2010Q4

REPORT INFORMATION
  Report Type: 
  Country: None (occurrence: None)
  Receive Date: 20101214
  Receipt Date: 20091128
  Transmission Date: 20110411
  Serious: No
  Sender: FDA-Public Use
  Company Number: US-AMGEN-KDL377237

PATIENT

DRUGS (1)
  1. ENBREL [Suspect]
     Indication: PSORIASIS
     Dosage: 50 MG, 2 TIMES/WK
     Route: 058
     Dates: start: 20091116

REACTIONS (4)
  - ACNE [None]
  - INCISION SITE OEDEMA [None]
  - LYMPHADENOPATHY [None]
  - OROPHARYNGEAL PAIN [None]
